FAERS Safety Report 6528647-7 (Version None)
Quarter: 2010Q1

REPORT INFORMATION
  Report Type: 
  Country: None (occurrence: None)
  Receive Date: 20100106
  Receipt Date: 20091222
  Transmission Date: 20100710
  Serious: Yes (Hospitalization, Other)
  Sender: FDA-Public Use
  Company Number: GB-MERCK-0912GBR00065

PATIENT
  Age: 68 Year
  Sex: Male
  Weight: 75 kg

DRUGS (9)
  1. ZOCOR [Suspect]
     Route: 048
  2. LIPITOR [Suspect]
     Route: 048
  3. LIPITOR [Suspect]
     Route: 048
  4. LIPITOR [Suspect]
     Route: 048
  5. ASPIRIN [Concomitant]
     Route: 048
  6. AMLODIPINE [Concomitant]
     Route: 048
  7. ATENOLOL [Concomitant]
     Route: 048
  8. GLUCOPHAGE [Concomitant]
     Route: 048
  9. PRINIVIL [Concomitant]
     Route: 048

REACTIONS (2)
  - CORONARY ARTERY DISEASE [None]
  - MYALGIA [None]
